FAERS Safety Report 23087337 (Version 1)
Quarter: 2023Q4

REPORT INFORMATION
  Report Type: Spontaneous
  Country: US (occurrence: US)
  Receive Date: 20231020
  Receipt Date: 20231020
  Transmission Date: 20240109
  Serious: No
  Sender: FDA-Public Use
  Company Number: US-SANOFI-01806716

PATIENT
  Age: 84 Year
  Sex: Female

DRUGS (3)
  1. LANTUS SOLOSTAR [Suspect]
     Active Substance: INSULIN GLARGINE
     Indication: Type 2 diabetes mellitus
     Dosage: 28 IU, QD AND DRUG TREATMENT DURATION:HALF WAY USED
  2. HUMALOG [Concomitant]
     Active Substance: INSULIN LISPRO
     Dosage: UNK
  3. FORMIN [METFORMIN HYDROCHLORIDE] [Concomitant]
     Dosage: UNK

REACTIONS (3)
  - Blood glucose decreased [Unknown]
  - Abdominal discomfort [Unknown]
  - Pancreatic disorder [Unknown]
